FAERS Safety Report 4378598-1 (Version None)
Quarter: 2004Q2

REPORT INFORMATION
  Report Type: 
  Country: None (occurrence: None)
  Receive Date: 20040610
  Receipt Date: 20040527
  Transmission Date: 20050107
  Serious: Yes (Hospitalization)
  Sender: FDA-Public Use
  Company Number: 2004SE03015

PATIENT
  Age: 69 Year
  Sex: Male
  Weight: 59 kg

DRUGS (10)
  1. BLOPRESS [Suspect]
     Indication: HYPERTENSION
     Dosage: 8 MG PO
     Route: 048
     Dates: start: 20040410
  2. ETHYL LOFLAZEPATE [Concomitant]
  3. PENICILLAMINE [Concomitant]
  4. PREDNISOLONE [Concomitant]
  5. METHOTREXATE SODIUM [Concomitant]
  6. LIMAPROST [Concomitant]
  7. MECOBALAMIN [Concomitant]
  8. TEPRENONE [Concomitant]
  9. FAMOTIDINE [Concomitant]
  10. BIOFERMIN [Concomitant]

REACTIONS (7)
  - ALCOHOL USE [None]
  - BLOOD PRESSURE DECREASED [None]
  - FALL [None]
  - INCONTINENCE [None]
  - LOSS OF CONSCIOUSNESS [None]
  - RESPIRATORY RATE DECREASED [None]
  - RESPIRATORY RATE INCREASED [None]
